FAERS Safety Report 21123979 (Version 1)
Quarter: 2022Q3

REPORT INFORMATION
  Report Type: Spontaneous
  Country: US (occurrence: US)
  Receive Date: 20220725
  Receipt Date: 20220725
  Transmission Date: 20221027
  Serious: No
  Sender: FDA-Public Use
  Company Number: US-SA-SAC20220720000894

PATIENT
  Sex: Female

DRUGS (1)
  1. DUPIXENT [Suspect]
     Active Substance: DUPILUMAB
     Indication: Nasal polyps
     Dosage: 300 MG QOW
     Route: 058

REACTIONS (5)
  - Cough [Recovering/Resolving]
  - Pneumonitis [Recovering/Resolving]
  - COVID-19 [Recovering/Resolving]
  - Asthma [Recovering/Resolving]
  - Product use in unapproved indication [Unknown]
